FAERS Safety Report 7730310-1 (Version None)
Quarter: 2011Q3

REPORT INFORMATION
  Report Type: 
  Country: None (occurrence: None)
  Receive Date: 20110906
  Receipt Date: 20110826
  Transmission Date: 20111222
  Serious: Yes (Other)
  Sender: FDA-Public Use
  Company Number: PHHY2011BR50786

PATIENT
  Sex: Female
  Weight: 68 kg

DRUGS (3)
  1. VOLTAREN [Suspect]
     Indication: BONE PAIN
     Dosage: 1 SUPPOSITORY BEFORE SLEEPING AT NIGHT
     Route: 054
  2. GINKGO BILOBA [Concomitant]
     Dosage: 1 DF, DAILY
     Route: 048
  3. GREEN TEA [Concomitant]
     Dosage: 1 DF, DAILY
     Route: 048

REACTIONS (2)
  - HYPERTENSION [None]
  - BONE PAIN [None]
